FAERS Safety Report 4434142-1 (Version None)
Quarter: 2004Q3

REPORT INFORMATION
  Report Type: 
  Country: None (occurrence: None)
  Receive Date: 20040826
  Receipt Date: 20040602
  Transmission Date: 20050211
  Serious: Yes (Hospitalization)
  Sender: FDA-Public Use
  Company Number: PHBS2004JP07399

PATIENT
  Age: 55 Year
  Sex: Female
  Weight: 48 kg

DRUGS (6)
  1. VOLTAREN [Suspect]
     Indication: PYREXIA
     Dosage: 50 MG, BID
     Route: 054
     Dates: start: 20040525, end: 20040501
  2. SULFASALAZINE [Suspect]
     Indication: ENTEROCOLITIS
     Dosage: 2000 MG/DAY
     Route: 048
     Dates: start: 20040506, end: 20040501
  3. FOIPAN [Concomitant]
     Indication: PANCREATITIS CHRONIC
     Route: 048
     Dates: end: 20040501
  4. TREPIBUTONE [Concomitant]
     Indication: PANCREATITIS CHRONIC
     Dosage: 120 MG/DAY
     Route: 048
     Dates: end: 20040501
  5. FELTASE [Concomitant]
     Indication: PANCREATITIS CHRONIC
     Dosage: 6 DF/DAY
     Route: 048
     Dates: end: 20040501
  6. ONE-ALPHA [Concomitant]
     Indication: OSTEOPOROSIS
     Dosage: 0.5 UG/DAY
     Route: 048
     Dates: end: 20040501

REACTIONS (14)
  - ALANINE AMINOTRANSFERASE INCREASED [None]
  - ASPARTATE AMINOTRANSFERASE INCREASED [None]
  - BLOOD ALKALINE PHOSPHATASE INCREASED [None]
  - BLOOD LACTATE DEHYDROGENASE INCREASED [None]
  - C-REACTIVE PROTEIN INCREASED [None]
  - DRUG ERUPTION [None]
  - ERYTHEMA [None]
  - GAMMA-GLUTAMYLTRANSFERASE INCREASED [None]
  - HEPATIC FUNCTION ABNORMAL [None]
  - HYPERSENSITIVITY [None]
  - LOSS OF CONSCIOUSNESS [None]
  - PYREXIA [None]
  - RASH [None]
  - WHITE BLOOD CELL COUNT INCREASED [None]
